FAERS Safety Report 22839338 (Version 9)
Quarter: 2025Q2

REPORT INFORMATION
  Report Type: Spontaneous
  Country: US (occurrence: US)
  Receive Date: 20230818
  Receipt Date: 20250606
  Transmission Date: 20250717
  Serious: Yes (Other)
  Sender: PFIZER
  Company Number: US-PFIZER INC-PV202300139115

PATIENT
  Age: 75 Year
  Sex: Female
  Weight: 110.38 kg

DRUGS (5)
  1. IBRANCE [Suspect]
     Active Substance: PALBOCICLIB
     Indication: Breast cancer female
     Dates: start: 20220523
  2. IBRANCE [Suspect]
     Active Substance: PALBOCICLIB
     Dates: start: 20220601
  3. IBRANCE [Suspect]
     Active Substance: PALBOCICLIB
  4. IBRANCE [Suspect]
     Active Substance: PALBOCICLIB
  5. ARIMIDEX [Concomitant]
     Active Substance: ANASTROZOLE
     Dates: start: 20220601

REACTIONS (4)
  - Hepatotoxicity [Unknown]
  - Breast cancer recurrent [Unknown]
  - COVID-19 [Unknown]
  - Pleural effusion [Recovered/Resolved]

NARRATIVE: CASE EVENT DATE: 20220721
